FAERS Safety Report 9089986 (Version 1)
Quarter: 2013Q1

REPORT INFORMATION
  Report Type: Report from Study
  Country: US (occurrence: US)
  Receive Date: 20130131
  Receipt Date: 20130131
  Transmission Date: 20140127
  Serious: No
  Sender: FDA-Public Use
  Company Number: US-ABBOTT-12P-163-0990466-00

PATIENT
  Age: 41 Year
  Sex: Male
  Weight: 79.45 kg

DRUGS (7)
  1. HUMIRA [Suspect]
     Indication: CROHN^S DISEASE
     Dates: start: 20120921, end: 20120921
  2. VITAMIN B-12 [Concomitant]
     Indication: CROHN^S DISEASE
  3. CANASA [Concomitant]
     Indication: CROHN^S DISEASE
  4. CIPRO [Concomitant]
     Indication: CROHN^S DISEASE
  5. FLAGYL (NON-ABBOTT) [Concomitant]
     Indication: CROHN^S DISEASE
  6. ENTEGRA (NON-ABBOTT) [Concomitant]
     Indication: ANAEMIA
  7. VITAMIN D [Concomitant]
     Indication: VITAMIN D DECREASED

REACTIONS (1)
  - Fatigue [Not Recovered/Not Resolved]
